FAERS Safety Report 16868083 (Version 1)
Quarter: 2019Q4

REPORT INFORMATION
  Report Type: Spontaneous
  Country: US (occurrence: US)
  Receive Date: 20190930
  Receipt Date: 20190930
  Transmission Date: 20200122
  Serious: Yes (Other)
  Sender: FDA-Public Use
  Company Number: None

PATIENT
  Age: 43 Year
  Sex: Male
  Weight: 108 kg

DRUGS (5)
  1. VENLAFAXINE HCL [Concomitant]
     Active Substance: VENLAFAXINE HYDROCHLORIDE
     Indication: DEPRESSION
     Dosage: ?          QUANTITY:1 CAPSULE(S);?
     Route: 048
  2. PHENTERMINE HCL 37.5 MG TAB SUNR [Suspect]
     Active Substance: PHENTERMINE HYDROCHLORIDE
     Indication: WEIGHT DECREASED
     Dosage: ?          QUANTITY:1 TABLET(S);?
     Route: 048
     Dates: start: 20190713, end: 20190715
  3. LEXIPRO [Concomitant]
  4. PREVACID / LANSOPRAZOLE [Concomitant]
  5. MULTI-VITAMIN [Concomitant]
     Active Substance: .ALPHA.-TOCOPHEROL ACETATE, DL-\ASCORBIC ACID\CYANOCOBALAMIN\FLUORIDE ION\FOLIC ACID\NIACIN\PYRIDOXINE\RIBOFLAVIN\THIAMINE\VITAMIN A\VITAMIN D

REACTIONS (10)
  - Anxiety [None]
  - Feeling abnormal [None]
  - Insomnia [None]
  - Agitation [None]
  - Paranoia [None]
  - Drug interaction [None]
  - Panic attack [None]
  - Restlessness [None]
  - Feeling jittery [None]
  - Sleep deficit [None]

NARRATIVE: CASE EVENT DATE: 20190715
